FAERS Safety Report 25061542 (Version 1)
Quarter: 2025Q1

REPORT INFORMATION
  Report Type: Spontaneous
  Country: CA (occurrence: CA)
  Receive Date: 20250311
  Receipt Date: 20250311
  Transmission Date: 20250408
  Serious: Yes (Hospitalization, Other)
  Sender: SANDOZ
  Company Number: CA-002147023-NVSC2025CA037518

PATIENT
  Age: 61 Year
  Sex: Female
  Weight: 57 kg

DRUGS (27)
  1. AMOXICILLIN [Suspect]
     Active Substance: AMOXICILLIN
     Indication: Product used for unknown indication
     Route: 065
  2. BIAXIN [Suspect]
     Active Substance: CLARITHROMYCIN
     Indication: Product used for unknown indication
     Route: 065
  3. OMALIZUMAB [Suspect]
     Active Substance: OMALIZUMAB
     Route: 059
  4. OMALIZUMAB [Suspect]
     Active Substance: OMALIZUMAB
     Route: 059
  5. OMALIZUMAB [Suspect]
     Active Substance: OMALIZUMAB
     Route: 059
  6. OMALIZUMAB [Suspect]
     Active Substance: OMALIZUMAB
     Route: 059
  7. OMALIZUMAB [Suspect]
     Active Substance: OMALIZUMAB
     Route: 059
  8. OMALIZUMAB [Suspect]
     Active Substance: OMALIZUMAB
     Route: 059
  9. OMALIZUMAB [Suspect]
     Active Substance: OMALIZUMAB
     Indication: Asthma
     Route: 059
  10. OMALIZUMAB [Suspect]
     Active Substance: OMALIZUMAB
     Route: 059
  11. OMALIZUMAB [Suspect]
     Active Substance: OMALIZUMAB
     Route: 059
  12. OMALIZUMAB [Suspect]
     Active Substance: OMALIZUMAB
     Route: 059
  13. OMALIZUMAB [Suspect]
     Active Substance: OMALIZUMAB
     Route: 059
  14. OMALIZUMAB [Suspect]
     Active Substance: OMALIZUMAB
     Route: 059
  15. OMALIZUMAB [Suspect]
     Active Substance: OMALIZUMAB
     Route: 059
  16. OMALIZUMAB [Suspect]
     Active Substance: OMALIZUMAB
     Route: 065
  17. OMALIZUMAB [Suspect]
     Active Substance: OMALIZUMAB
     Route: 065
  18. OMALIZUMAB [Suspect]
     Active Substance: OMALIZUMAB
     Route: 065
  19. OMALIZUMAB [Suspect]
     Active Substance: OMALIZUMAB
     Route: 065
  20. OMALIZUMAB [Suspect]
     Active Substance: OMALIZUMAB
     Route: 065
  21. OMALIZUMAB [Suspect]
     Active Substance: OMALIZUMAB
     Route: 065
  22. OMALIZUMAB [Suspect]
     Active Substance: OMALIZUMAB
     Route: 065
  23. OMALIZUMAB [Suspect]
     Active Substance: OMALIZUMAB
     Route: 065
  24. OMALIZUMAB [Suspect]
     Active Substance: OMALIZUMAB
     Route: 065
  25. BUDESONIDE\FORMOTEROL FUMARATE [Concomitant]
     Active Substance: BUDESONIDE\FORMOTEROL FUMARATE
     Indication: Product used for unknown indication
     Route: 065
  26. SINGULAIR [Concomitant]
     Active Substance: MONTELUKAST SODIUM
     Indication: Product used for unknown indication
     Dosage: UNK, QD
     Route: 065
  27. SPIRIVA [Concomitant]
     Active Substance: TIOTROPIUM BROMIDE MONOHYDRATE
     Indication: Product used for unknown indication
     Dosage: UNK, QD
     Route: 065

REACTIONS (21)
  - Aphonia [Recovered/Resolved]
  - Nasopharyngitis [Recovered/Resolved]
  - Pneumonia [Recovered/Resolved]
  - Productive cough [Recovered/Resolved]
  - Road traffic accident [Recovered/Resolved]
  - Sinusitis [Recovered/Resolved]
  - Tendonitis [Recovered/Resolved]
  - Tissue injury [Recovered/Resolved]
  - Arthralgia [Recovered/Resolved]
  - Weight decreased [Recovered/Resolved]
  - Wheezing [Recovered/Resolved]
  - Body temperature decreased [Recovered/Resolved]
  - Drug hypersensitivity [Recovered/Resolved]
  - Ear infection [Recovered/Resolved]
  - Hypoventilation [Recovered/Resolved]
  - Limb discomfort [Recovered/Resolved]
  - Middle ear effusion [Recovered/Resolved]
  - Cough [Recovered/Resolved]
  - Rash [Recovered/Resolved]
  - Product use issue [Recovered/Resolved]
  - Off label use [Recovered/Resolved]
